FAERS Safety Report 7938373-5 (Version None)
Quarter: 2011Q4

REPORT INFORMATION
  Report Type: 
  Country: None (occurrence: None)
  Receive Date: 20111123
  Receipt Date: 20111121
  Transmission Date: 20120403
  Serious: Yes (Hospitalization)
  Sender: FDA-Public Use
  Company Number: US-GILEAD-2011-0045997

PATIENT
  Sex: Male

DRUGS (7)
  1. LETAIRIS [Suspect]
     Indication: PULMONARY HYPERTENSION
     Dosage: 10 MG, UNK
     Route: 048
     Dates: start: 20110924
  2. TYVASO [Concomitant]
  3. LETAIRIS [Suspect]
     Indication: HEPATECTOMY
  4. LETAIRIS [Suspect]
     Indication: PULMONARY EMBOLISM
  5. REMODULIN [Concomitant]
  6. REVATIO [Concomitant]
  7. VENTAVIS [Concomitant]
     Indication: PULMONARY HYPERTENSION

REACTIONS (2)
  - HYPOXIA [None]
  - PULMONARY HYPERTENSION [None]
